FAERS Safety Report 4867341-5 (Version None)
Quarter: 2005Q4

REPORT INFORMATION
  Report Type: 
  Country: None (occurrence: None)
  Receive Date: 20051214
  Receipt Date: 20051201
  Transmission Date: 20060501
  Serious: Yes (Hospitalization)
  Sender: FDA-Public Use
  Company Number: B0402406A

PATIENT
  Age: 35 Year
  Sex: Male

DRUGS (6)
  1. AMOX. TRIHYD+POT. CLAVULAN. (FORMULATION UNKNOWN) (AMOX.TRIHYD+POT.CLA [Suspect]
     Dosage: UNK/FOUR TIMES PER DAY
  2. NORFLOXACIN [Suspect]
     Dosage: 400 MG /TWICE PER DAY/ORAL
     Route: 048
  3. SPIRONOLACTONE [Suspect]
     Dosage: 75 MG / PER DAY
  4. FRUSEMIDE (FORMULATION UNKNOWN) (FRUOSEMIDE) [Suspect]
     Dosage: 40 MG/ PER DAY
  5. PROPRANOLOL HYDROCHLORIDE (FORMULATION UNKNOWN) (PROPRANOLOL HYDROCHLO [Suspect]
     Dosage: 160 MG/ PER DAY
  6. TERLIPRESSIN [Concomitant]

REACTIONS (1)
  - EOSINOPHILIA [None]
